FAERS Safety Report 10602458 (Version 4)
Quarter: 2015Q4

REPORT INFORMATION
  Report Type: Report from Study
  Country: VE (occurrence: VE)
  Receive Date: 20141124
  Receipt Date: 20151106
  Transmission Date: 20160304
  Serious: Yes (Hospitalization, Other)
  Sender: FDA-Public Use
  Company Number: PHHY2014VE148720

PATIENT
  Age: 62 Year
  Sex: Female

DRUGS (12)
  1. LANTUS [Concomitant]
     Active Substance: INSULIN GLARGINE
     Indication: PRODUCT USED FOR UNKNOWN INDICATION
     Route: 065
  2. PLAVIX [Concomitant]
     Active Substance: CLOPIDOGREL BISULFATE
     Indication: CARDIAC DISORDER
     Dosage: 75 MG, UNK
     Route: 065
  3. TASIGNA [Suspect]
     Active Substance: NILOTINIB
     Indication: CHRONIC MYELOID LEUKAEMIA
     Dosage: 200 MG, QD (TOOK ONLY TWICE, ON TASIGNA FOR ONE DAY AND A HALF.)
     Route: 048
     Dates: start: 20141027, end: 20141105
  4. CONCOR [Concomitant]
     Active Substance: BISOPROLOL FUMARATE
     Indication: PRODUCT USED FOR UNKNOWN INDICATION
     Dosage: 2.5 MG, UNK
     Route: 065
  5. LIPITOR [Concomitant]
     Active Substance: ATORVASTATIN CALCIUM
     Dosage: 40 MG, QD
     Route: 065
  6. LIPITOR [Concomitant]
     Active Substance: ATORVASTATIN CALCIUM
     Dosage: 20 MG, UNK
     Route: 065
  7. LIPITOR [Concomitant]
     Active Substance: ATORVASTATIN CALCIUM
     Indication: PRODUCT USED FOR UNKNOWN INDICATION
     Dosage: 20 MG, UNK
     Route: 065
  8. SPRYCEL [Suspect]
     Active Substance: DASATINIB
     Indication: PRODUCT USED FOR UNKNOWN INDICATION
     Dosage: 50 MG, UNK
     Route: 065
  9. JANUVIA [Concomitant]
     Active Substance: SITAGLIPTIN PHOSPHATE
     Indication: DIABETES MELLITUS
     Dosage: 50 MG, UNK
     Route: 065
  10. CLAVIDUR                           /00756801/ [Concomitant]
     Indication: CARDIAC DISORDER
     Dosage: 75 MG, UNK
     Route: 065
  11. ASPIRIN. [Concomitant]
     Active Substance: ASPIRIN
     Indication: CARDIAC DISORDER
     Dosage: QD
     Route: 065
  12. ASPIRIN. [Concomitant]
     Active Substance: ASPIRIN
     Indication: PRODUCT USED FOR UNKNOWN INDICATION
     Route: 065

REACTIONS (10)
  - Neoplasm [Recovered/Resolved]
  - Pulmonary oedema [Recovering/Resolving]
  - Malaise [Recovering/Resolving]
  - Rash papular [Unknown]
  - Myocardial infarction [Recovering/Resolving]
  - Chest pain [Recovered/Resolved]
  - Limb discomfort [Recovered/Resolved]
  - Depressed mood [Recovered/Resolved]
  - Gait disturbance [Recovered/Resolved]
  - Rash generalised [Unknown]

NARRATIVE: CASE EVENT DATE: 20141028
